FAERS Safety Report 9374355 (Version 1)
Quarter: 2013Q2

REPORT INFORMATION
  Report Type: Report from Study
  Country: US (occurrence: US)
  Receive Date: 20130628
  Receipt Date: 20130628
  Transmission Date: 20140414
  Serious: Yes (Hospitalization)
  Sender: FDA-Public Use
  Company Number: PHEH2013US013777

PATIENT
  Age: 4 Year
  Sex: Male

DRUGS (1)
  1. TOBI [Suspect]
     Indication: INFECTION
     Dosage: 300 MG, BID
     Dates: start: 201303

REACTIONS (1)
  - Upper respiratory tract infection [Unknown]
